FAERS Safety Report 10905702 (Version 1)
Quarter: 2015Q1

REPORT INFORMATION
  Report Type: Report from Study
  Country: US (occurrence: KR)
  Receive Date: 20150311
  Receipt Date: 20150311
  Transmission Date: 20150721
  Serious: No
  Sender: FDA-Public Use
  Company Number: KR-FRI-1000060006

PATIENT
  Age: 31 Year
  Sex: Male
  Weight: 65.8 kg

DRUGS (5)
  1. ASENAPINE (OPEN-LABEL) [Suspect]
     Active Substance: ASENAPINE
     Dosage: 20 MG
     Route: 060
     Dates: start: 20121212, end: 20130204
  2. ASENAPINE (OPEN-LABEL) [Suspect]
     Active Substance: ASENAPINE
     Indication: SCHIZOPHRENIA
     Dosage: 10 MG
     Route: 060
     Dates: end: 20121130
  3. ASENAPINE (OPEN-LABEL) [Suspect]
     Active Substance: ASENAPINE
     Dosage: 10 MG
     Route: 060
     Dates: start: 20130204, end: 20130304
  4. LORAZEPAM. [Concomitant]
     Active Substance: LORAZEPAM
     Dates: start: 20130107
  5. ASENAPINE (OPEN-LABEL) [Suspect]
     Active Substance: ASENAPINE
     Dosage: 20 MG
     Route: 060
     Dates: start: 20130304

REACTIONS (1)
  - Medication error [Unknown]

NARRATIVE: CASE EVENT DATE: 20130204
